FAERS Safety Report 4301285-2 (Version None)
Quarter: 2004Q1

REPORT INFORMATION
  Report Type: 
  Country: None (occurrence: None)
  Receive Date: 20040220
  Receipt Date: 20040220
  Transmission Date: 20041129
  Serious: Yes (Life-Threatening)
  Sender: FDA-Public Use
  Company Number: None

PATIENT
  Age: 54 Year
  Sex: Female
  Weight: 65.7716 kg

DRUGS (2)
  1. ULTRACET [Suspect]
     Indication: ARTHRITIS
     Dosage: 1 TABLET EVERY 6 HOURS AS NEEDED
     Dates: start: 20030501
  2. ULTRACET [Suspect]
     Indication: ARTHRITIS
     Dosage: 1 TABLET EVERY 6 HOURS AS NEEDED
     Dates: start: 20040101

REACTIONS (1)
  - PLATELET COUNT DECREASED [None]
